FAERS Safety Report 13571238 (Version 1)
Quarter: 2017Q2

REPORT INFORMATION
  Report Type: Spontaneous
  Country: US (occurrence: US)
  Receive Date: 20170522
  Receipt Date: 20170522
  Transmission Date: 20170830
  Serious: No
  Sender: FDA-Public Use
  Company Number: None

PATIENT
  Age: 55 Year
  Sex: Female

DRUGS (1)
  1. DUPIXENT [Suspect]
     Active Substance: DUPILUMAB
     Indication: DERMATITIS ATOPIC
     Dosage: 600MG ONCE FOR FIRST DOSE SUBCUTANEOUSLY
     Route: 058
     Dates: start: 20170515

REACTIONS (2)
  - Discomfort [None]
  - Swelling [None]

NARRATIVE: CASE EVENT DATE: 20170516
